FAERS Safety Report 18562844 (Version 1)
Quarter: 2020Q4

REPORT INFORMATION
  Report Type: Spontaneous
  Country: US (occurrence: US)
  Receive Date: 20201130
  Receipt Date: 20201130
  Transmission Date: 20210114
  Serious: No
  Sender: FDA-Public Use
  Company Number: US-ROCHE-2673123

PATIENT
  Sex: Female

DRUGS (1)
  1. LUCENTIS [Suspect]
     Active Substance: RANIBIZUMAB
     Indication: MACULAR DEGENERATION
     Dosage: RECEIVED SEVERAL SHOTS IN RIGHT AND LEFT EYE
     Route: 065

REACTIONS (3)
  - Reading disorder [Unknown]
  - Eye pruritus [Unknown]
  - Visual impairment [Unknown]
